FAERS Safety Report 18490930 (Version 2)
Quarter: 2020Q4

REPORT INFORMATION
  Report Type: Spontaneous
  Country: US (occurrence: US)
  Receive Date: 20201111
  Receipt Date: 20201123
  Transmission Date: 20210114
  Serious: No
  Sender: FDA-Public Use
  Company Number: US-INTRA-CELLULAR THERAPIES, INC.-2020ICT00207

PATIENT
  Age: 27 Year
  Sex: Male

DRUGS (6)
  1. VIIBRYD [Concomitant]
     Active Substance: VILAZODONE HYDROCHLORIDE
  2. CAPLYTA [Suspect]
     Active Substance: LUMATEPERONE
     Indication: AUTISM SPECTRUM DISORDER
     Dosage: 1 DOSAGE UNITS, 1X/DAY
     Route: 048
     Dates: start: 202009
  3. CAPLYTA [Suspect]
     Active Substance: LUMATEPERONE
     Indication: BIPOLAR DISORDER
  4. CAPLYTA [Suspect]
     Active Substance: LUMATEPERONE
     Indication: PERSONALITY DISORDER
  5. SEVEN UNSPECIFIED MEDICATIONS [Concomitant]
  6. CAPLYTA [Suspect]
     Active Substance: LUMATEPERONE
     Indication: ANXIETY DISORDER

REACTIONS (2)
  - Anxiety [Recovered/Resolved]
  - Off label use [Not Recovered/Not Resolved]

NARRATIVE: CASE EVENT DATE: 2020
